FAERS Safety Report 6407389-2 (Version None)
Quarter: 2009Q4

REPORT INFORMATION
  Report Type: 
  Country: None (occurrence: None)
  Receive Date: 20091020
  Receipt Date: 20091009
  Transmission Date: 20100525
  Serious: Yes (Hospitalization)
  Sender: FDA-Public Use
  Company Number: CA-JNJFOC-20091004531

PATIENT
  Sex: Female
  Weight: 95.4 kg

DRUGS (2)
  1. REMICADE [Suspect]
     Indication: CROHN'S DISEASE
     Dosage: 3 INFUSIONS TOTAL
     Route: 042
  2. ACETAMINOPHEN [Concomitant]
     Indication: PREMEDICATION
     Route: 048

REACTIONS (8)
  - CHEST DISCOMFORT [None]
  - COUGH [None]
  - DYSPNOEA [None]
  - NAUSEA [None]
  - OROPHARYNGEAL PAIN [None]
  - PYREXIA [None]
  - SINUS CONGESTION [None]
  - SYNCOPE [None]
